FAERS Safety Report 9610939 (Version 1)
Quarter: 2013Q4

REPORT INFORMATION
  Report Type: Spontaneous
  Country: DK (occurrence: DE)
  Receive Date: 20131009
  Receipt Date: 20131009
  Transmission Date: 20140711
  Serious: Yes (Congenital Anomaly)
  Sender: FDA-Public Use
  Company Number: DE-FRI-1000049846

PATIENT
  Age: 0 Day
  Sex: Male
  Weight: 3.3 kg

DRUGS (3)
  1. CITALOPRAM [Suspect]
     Indication: DEPRESSION
     Dosage: 40 - 60 MG/DAY
     Route: 064
  2. PARACETAMOL [Concomitant]
     Indication: PAIN
     Route: 064
  3. FEMIBION [Concomitant]
     Indication: PROPHYLAXIS OF NEURAL TUBE DEFECT
     Dosage: 0.4 MG
     Route: 064

REACTIONS (5)
  - Choanal atresia [Recovered/Resolved with Sequelae]
  - Hydrocele [Recovering/Resolving]
  - Testicular torsion [Unknown]
  - Foetal exposure during pregnancy [Unknown]
  - Prescribed overdose [Unknown]
